FAERS Safety Report 24091410 (Version 2)
Quarter: 2024Q3

REPORT INFORMATION
  Report Type: Report from Study
  Country: US (occurrence: US)
  Receive Date: 20240715
  Receipt Date: 20240806
  Transmission Date: 20241017
  Serious: No
  Sender: ALEXION PHARMACEUTICALS
  Company Number: US-AstraZeneca-CH-00661503A

PATIENT
  Sex: Male

DRUGS (1)
  1. ULTOMIRIS [Suspect]
     Active Substance: RAVULIZUMAB-CWVZ
     Indication: Myasthenia gravis
     Dosage: UNK
     Route: 042

REACTIONS (8)
  - Pain in extremity [Unknown]
  - Inflammation [Unknown]
  - Hypersomnia [Unknown]
  - Skin striae [Unknown]
  - Sinus disorder [Unknown]
  - Weight increased [Recovering/Resolving]
  - Pain [Unknown]
  - White blood cell count increased [Unknown]
